FAERS Safety Report 25019514 (Version 1)
Quarter: 2025Q1

REPORT INFORMATION
  Report Type: Spontaneous
  Country: US (occurrence: US)
  Receive Date: 20250227
  Receipt Date: 20250227
  Transmission Date: 20250409
  Serious: Yes (Death, Other)
  Sender: PURDUE
  Company Number: US-PURDUE-USA-2025-0315714

PATIENT
  Age: 81 Year
  Sex: Female

DRUGS (1)
  1. HYDROCODONE BITARTRATE [Suspect]
     Active Substance: HYDROCODONE BITARTRATE
     Indication: Product used for unknown indication
     Route: 065

REACTIONS (9)
  - Vomiting [Fatal]
  - Traumatic lung injury [Fatal]
  - Brain injury [Fatal]
  - Cardiac arrest [Fatal]
  - Pneumothorax [Unknown]
  - Hiatus hernia [Unknown]
  - Dehydration [Unknown]
  - Somnolence [Unknown]
  - Malaise [Unknown]

NARRATIVE: CASE EVENT DATE: 20240610
